FAERS Safety Report 9975373 (Version 1)
Quarter: 2014Q1

REPORT INFORMATION
  Report Type: Report from Study
  Country: US (occurrence: US)
  Receive Date: 20140306
  Receipt Date: 20140306
  Transmission Date: 20141002
  Serious: No
  Sender: FDA-Public Use
  Company Number: US-ABBVIE-13P-163-1158216-00

PATIENT
  Age: 60 Year
  Sex: Male

DRUGS (16)
  1. HUMIRA [Suspect]
     Indication: PSORIATIC ARTHROPATHY
     Dates: start: 20130922
  2. INSULIN [Concomitant]
     Indication: DIABETES MELLITUS
     Dosage: TWO SHOTS IN THE EVENING
  3. METFORMIN [Concomitant]
     Indication: DIABETES MELLITUS
  4. GLIPIZIDE [Concomitant]
     Indication: DIABETES MELLITUS
  5. FLUOXETINE [Concomitant]
     Indication: DEPRESSION
     Dosage: 40MG DAILY
  6. FLUOXETINE [Concomitant]
     Indication: ANXIETY
  7. LISINOPRIL [Concomitant]
     Indication: BLOOD PRESSURE
     Dosage: 5MG DAILY
  8. ATORVASTATIN [Concomitant]
     Indication: BLOOD CHOLESTEROL
     Dosage: 80MG DAILY
  9. CARVEDILOL [Concomitant]
     Indication: CARDIAC DISORDER
  10. CLOPIDOGREL [Concomitant]
     Indication: CORONARY ARTERIAL STENT INSERTION
     Dosage: 75MG DAILY
  11. DOCUSATE SODIUM [Concomitant]
     Indication: CONSTIPATION
  12. FENOFIBRATE [Concomitant]
     Indication: BLOOD CHOLESTEROL
     Dosage: 160MG DAILY
  13. ASPIRIN [Concomitant]
     Indication: PRODUCT USED FOR UNKNOWN INDICATION
     Dosage: 81MG DAILY
  14. NITROGLYCERIN [Concomitant]
     Indication: CHEST PAIN
  15. METHOCARBAMOL [Concomitant]
     Indication: MUSCLE SPASMS
     Dosage: UP TO 3 THREE TIMES DAILY
  16. NABUMETONE [Concomitant]
     Indication: ARTHRALGIA
     Dosage: AS NEEDED

REACTIONS (1)
  - Fatigue [Recovered/Resolved]
